FAERS Safety Report 17946920 (Version 1)
Quarter: 2020Q2

REPORT INFORMATION
  Report Type: Spontaneous
  Country: US (occurrence: US)
  Receive Date: 20200624
  Receipt Date: 20200624
  Transmission Date: 20200714
  Serious: Yes (Other)
  Sender: FDA-Public Use
  Company Number: None

PATIENT
  Age: 29 Year
  Sex: Female
  Weight: 52.16 kg

DRUGS (1)
  1. RECEPTRA ELITE 2000MG [Suspect]
     Active Substance: CANNABIDIOL\HERBALS
     Indication: DRUG THERAPY

REACTIONS (3)
  - Diarrhoea [None]
  - Vomiting [None]
  - Malaise [None]

NARRATIVE: CASE EVENT DATE: 20200120
